FAERS Safety Report 6339237-3 (Version None)
Quarter: 2009Q3

REPORT INFORMATION
  Report Type: 
  Country: None (occurrence: None)
  Receive Date: 20090903
  Receipt Date: 20090825
  Transmission Date: 20100115
  Serious: Yes (Other)
  Sender: FDA-Public Use
  Company Number: US-ASTRAZENECA-2009SE10204

PATIENT
  Age: 69 Year
  Sex: Male

DRUGS (7)
  1. SYMBICORT [Suspect]
     Dosage: 160/4.5 UG, 2 INHALATIONS BID
     Route: 055
  2. ZETIA [Concomitant]
  3. LAZINOPRO [Concomitant]
  4. HYDROCHLOROTHORAZIDE [Concomitant]
  5. ASPIRIN [Concomitant]
  6. XOPONEX [Concomitant]
  7. OMNARIS [Concomitant]

REACTIONS (4)
  - BLOOD PRESSURE INCREASED [None]
  - HEART RATE IRREGULAR [None]
  - MUSCLE SPASMS [None]
  - TREMOR [None]
